FAERS Safety Report 15247006 (Version 2)
Quarter: 2020Q1

REPORT INFORMATION
  Report Type: Report from Study
  Country: KR (occurrence: KR)
  Receive Date: 20180806
  Receipt Date: 20200128
  Transmission Date: 20200409
  Serious: Yes (Hospitalization)
  Sender: FDA-Public Use
  Company Number: KR-ELI_LILLY_AND_COMPANY-KR201807014989

PATIENT
  Age: 69 Year
  Sex: Female
  Weight: 81 kg

DRUGS (29)
  1. ASPIRIN [ACETYLSALICYLIC ACID] [Suspect]
     Active Substance: ASPIRIN
     Indication: PRODUCT USED FOR UNKNOWN INDICATION
     Dosage: 100 MG, DAILY
     Route: 048
     Dates: start: 20170822
  2. OLMETEC PLUS [Concomitant]
     Active Substance: HYDROCHLOROTHIAZIDE\OLMESARTAN MEDOXOMIL
     Indication: ANTIPLATELET THERAPY
     Dosage: 1 DF, DAILY
     Route: 048
     Dates: start: 20170822, end: 20170822
  3. OLMETEC PLUS [Concomitant]
     Active Substance: HYDROCHLOROTHIAZIDE\OLMESARTAN MEDOXOMIL
     Indication: ACUTE CORONARY SYNDROME
     Dosage: UNK, UNKNOWN
     Route: 065
  4. DILATREND [Concomitant]
     Active Substance: CARVEDILOL
     Indication: ANTIPLATELET THERAPY
     Dosage: 6.25 MG, DAILY
     Route: 048
     Dates: start: 20170822, end: 20170822
  5. AMODIPIN [Concomitant]
     Indication: ANTIPLATELET THERAPY
     Dosage: 5 MG, DAILY
     Route: 048
     Dates: start: 20170822, end: 20170822
  6. NICORANDIL [Concomitant]
     Active Substance: NICORANDIL
     Indication: ANTIPLATELET THERAPY
     Dosage: 20 MG, BID
     Route: 048
     Dates: start: 20170918
  7. NICORANDIL [Concomitant]
     Active Substance: NICORANDIL
     Indication: ACUTE CORONARY SYNDROME
     Dosage: UNK, UNKNOWN
     Route: 065
  8. CRESTOR [Concomitant]
     Active Substance: ROSUVASTATIN CALCIUM
     Indication: ACUTE CORONARY SYNDROME
     Dosage: UNK, UNKNOWN
     Route: 065
  9. LEVACALM [Concomitant]
     Indication: ANTIPLATELET THERAPY
     Dosage: 1 DF, DAILY
     Route: 048
     Dates: start: 20170918
  10. CONCOR [Concomitant]
     Active Substance: BISOPROLOL FUMARATE
     Indication: ANTIPLATELET THERAPY
     Dosage: 1.25 MG, DAILY
     Route: 048
     Dates: start: 20170828
  11. CLOPIDOGREL [Suspect]
     Active Substance: CLOPIDOGREL BISULFATE
     Indication: PRODUCT USED FOR UNKNOWN INDICATION
     Dosage: 600 MG, DAILY
     Route: 048
     Dates: start: 20170822
  12. ZANIDIP [Concomitant]
     Active Substance: LERCANIDIPINE HYDROCHLORIDE
     Indication: ACUTE CORONARY SYNDROME
     Dosage: UNK, UNKNOWN
     Route: 065
  13. CRESTOR [Concomitant]
     Active Substance: ROSUVASTATIN CALCIUM
     Indication: ANTIPLATELET THERAPY
     Dosage: 20 MG, DAILY
     Route: 048
     Dates: start: 20170823
  14. VASTINAN [Concomitant]
     Active Substance: TRIMETAZIDINE DIHYDROCHLORIDE
     Indication: ACUTE CORONARY SYNDROME
     Dosage: UNK, UNKNOWN
     Route: 065
  15. DIOVAN [Concomitant]
     Active Substance: VALSARTAN
     Indication: ACUTE CORONARY SYNDROME
     Dosage: UNK, UNKNOWN
     Route: 065
  16. LEVACALM [Concomitant]
     Indication: ACUTE CORONARY SYNDROME
     Dosage: UNK, UNKNOWN
     Route: 065
  17. CONCOR [Concomitant]
     Active Substance: BISOPROLOL FUMARATE
     Indication: ACUTE CORONARY SYNDROME
     Dosage: UNK, UNKNOWN
     Route: 065
  18. NITROGLYCERIN. [Concomitant]
     Active Substance: NITROGLYCERIN
     Indication: ACUTE CORONARY SYNDROME
     Dosage: UNK, UNKNOWN
     Route: 065
  19. PRASUGREL HYDROCHLORIDE [Suspect]
     Active Substance: PRASUGREL HYDROCHLORIDE
     Indication: PRODUCT USED FOR UNKNOWN INDICATION
     Dosage: 10 MG, DAILY
     Route: 048
     Dates: start: 20170823, end: 20171125
  20. HEPARIN SODIUM. [Concomitant]
     Active Substance: HEPARIN SODIUM
     Indication: ACUTE CORONARY SYNDROME
     Dosage: UNK
  21. ZANIDIP [Concomitant]
     Active Substance: LERCANIDIPINE HYDROCHLORIDE
     Indication: ANTIPLATELET THERAPY
     Dosage: 20 MG, DAILY
     Route: 048
     Dates: start: 20170823, end: 20170921
  22. NITROGLYCERIN. [Concomitant]
     Active Substance: NITROGLYCERIN
     Indication: ANTIPLATELET THERAPY
     Dosage: .6 MG, DAILY
     Route: 048
     Dates: start: 20170823, end: 20171125
  23. DILATREND [Concomitant]
     Active Substance: CARVEDILOL
     Indication: ACUTE CORONARY SYNDROME
     Dosage: UNK, UNKNOWN
     Route: 065
  24. NITROGLYCERIN. [Concomitant]
     Active Substance: NITROGLYCERIN
     Indication: ANTIPLATELET THERAPY
     Dosage: 10 MG, DAILY
     Route: 042
     Dates: start: 20170822, end: 20170822
  25. AMODIPIN [Concomitant]
     Indication: ACUTE CORONARY SYNDROME
     Dosage: UNK, UNKNOWN
     Route: 065
  26. DIOVAN [Concomitant]
     Active Substance: VALSARTAN
     Indication: ANTIPLATELET THERAPY
     Dosage: 80 MG, DAILY
     Route: 048
     Dates: start: 20170823, end: 20170921
  27. VASTINAN [Concomitant]
     Active Substance: TRIMETAZIDINE DIHYDROCHLORIDE
     Indication: ANTIPLATELET THERAPY
     Dosage: 70 MG, BID
     Route: 048
     Dates: start: 20170823, end: 20170921
  28. HEPARIN SODIUM. [Concomitant]
     Active Substance: HEPARIN SODIUM
     Indication: ANTIPLATELET THERAPY
     Dosage: 13000 IU, DAILY
     Route: 042
     Dates: start: 20170822, end: 20170822
  29. NITROGLYCERIN. [Concomitant]
     Active Substance: NITROGLYCERIN
     Indication: ACUTE CORONARY SYNDROME
     Dosage: UNK, UNKNOWN
     Route: 065

REACTIONS (1)
  - Cerebrovascular accident [Recovering/Resolving]

NARRATIVE: CASE EVENT DATE: 201709
